FAERS Safety Report 6814336-8 (Version None)
Quarter: 2010Q3

REPORT INFORMATION
  Report Type: 
  Country: None (occurrence: None)
  Receive Date: 20100702
  Receipt Date: 20100624
  Transmission Date: 20110219
  Serious: Yes (Death, Other)
  Sender: FDA-Public Use
  Company Number: DE-ELI_LILLY_AND_COMPANY-DE201005002401

PATIENT
  Sex: Male

DRUGS (6)
  1. DULOXETINE HYDROCHLORIDE [Suspect]
     Indication: DIABETIC NEUROPATHY
     Dosage: 30 MG, UNK
     Route: 048
  2. ASPIRIN [Concomitant]
     Indication: CORONARY ARTERY DISEASE
     Dosage: 100 D/F, UNK
     Route: 048
  3. SIMVASTATIN [Concomitant]
     Indication: HYPERLIPIDAEMIA
     Dosage: 40 D/F, UNK
     Route: 048
  4. SIOFOR [Concomitant]
     Indication: DIABETES MELLITUS
     Dosage: 2000 D/F, UNK
     Route: 048
  5. METOPROLOL SUCCINATE [Concomitant]
     Indication: CORONARY ARTERY DISEASE
     Dosage: 95 MG, UNK
     Route: 048
  6. ACTRAPID                           /00030501/ [Concomitant]
     Indication: DIABETES MELLITUS

REACTIONS (4)
  - ACUTE ENDOCARDITIS [None]
  - HEPATIC FAILURE [None]
  - MITRAL VALVE DISEASE [None]
  - RENAL FAILURE [None]
